FAERS Safety Report 19195350 (Version 1)
Quarter: 2021Q2

REPORT INFORMATION
  Report Type: Other
  Country: SG (occurrence: SG)
  Receive Date: 20210429
  Receipt Date: 20210429
  Transmission Date: 20210717
  Serious: Yes (Hospitalization)
  Sender: FDA-Public Use
  Company Number: SG-B.BRAUN MEDICAL INC.-2109993

PATIENT
  Age: 72 Year
  Sex: Male

DRUGS (1)
  1. CEFAZOLIN FOR INJECTION USP AND DEXTROSE INJECTION USP 0264?3103?11 (N [Suspect]
     Active Substance: CEFAZOLIN
     Route: 042

REACTIONS (1)
  - Coagulopathy [None]
